FAERS Safety Report 19678694 (Version 3)
Quarter: 2022Q2

REPORT INFORMATION
  Report Type: Spontaneous
  Country: US (occurrence: US)
  Receive Date: 20210809
  Receipt Date: 20220428
  Transmission Date: 20220721
  Serious: No
  Sender: FDA-Public Use
  Company Number: US-PFIZER INC-2021039303

PATIENT
  Age: 56 Year
  Sex: Female

DRUGS (1)
  1. XELJANZ XR [Suspect]
     Active Substance: TOFACITINIB CITRATE
     Indication: Rheumatoid arthritis
     Dosage: 11 MG, DAILY
     Route: 048
     Dates: start: 20201201

REACTIONS (9)
  - Drug ineffective [Unknown]
  - Depressed mood [Unknown]
  - Discouragement [Unknown]
  - Initial insomnia [Unknown]
  - Pain [Unknown]
  - Fatigue [Unknown]
  - Exostosis [Unknown]
  - Condition aggravated [Unknown]
  - Full blood count increased [Unknown]

NARRATIVE: CASE EVENT DATE: 20201201
